FAERS Safety Report 12209158 (Version 1)
Quarter: 2016Q1

REPORT INFORMATION
  Report Type: Spontaneous
  Country: US (occurrence: US)
  Receive Date: 20160324
  Receipt Date: 20160324
  Transmission Date: 20160526
  Serious: Yes (Hospitalization, Other)
  Sender: FDA-Public Use
  Company Number: US-GLAXOSMITHKLINE-US2016040486

PATIENT
  Age: 44 Year
  Sex: Female

DRUGS (2)
  1. VALTREX [Suspect]
     Active Substance: VALACYCLOVIR HYDROCHLORIDE
     Indication: HERPES VIRUS INFECTION
     Dosage: 1 G, 1D
     Route: 048
     Dates: start: 2011
  2. MOTRIN [Concomitant]
     Active Substance: IBUPROFEN

REACTIONS (1)
  - Spinal cord injury [Recovering/Resolving]

NARRATIVE: CASE EVENT DATE: 20150129
